FAERS Safety Report 6792148-1 (Version None)
Quarter: 2010Q2

REPORT INFORMATION
  Report Type: 
  Country: None (occurrence: None)
  Receive Date: 20100624
  Receipt Date: 20080808
  Transmission Date: 20101027
  Serious: No
  Sender: FDA-Public Use
  Company Number: US-PFIZER INC-2008060980

PATIENT
  Age: 27 Year
  Sex: Female

DRUGS (1)
  1. DEPO-PROVERA SUSPENSION/INJ [Suspect]
     Indication: CONTRACEPTION
     Dates: start: 20030101, end: 20070101

REACTIONS (5)
  - EMOTIONAL DISORDER [None]
  - HYPERSOMNIA [None]
  - INSOMNIA [None]
  - MOOD SWINGS [None]
  - VOMITING [None]
